FAERS Safety Report 8118865-9 (Version None)
Quarter: 2012Q1

REPORT INFORMATION
  Report Type: 
  Country: None (occurrence: None)
  Receive Date: 20120207
  Receipt Date: 20120131
  Transmission Date: 20120608
  Serious: Yes (Death, Hospitalization, Other)
  Sender: FDA-Public Use
  Company Number: IT-ELI_LILLY_AND_COMPANY-IT201201009104

PATIENT
  Sex: Male

DRUGS (5)
  1. DEXAMETHASONE PHOSPHATE [Concomitant]
     Indication: PROPHYLAXIS
     Dosage: 20 MG, UNKNOWN
     Route: 042
     Dates: start: 20111215
  2. ENOXAPARIN SODIUM [Concomitant]
     Indication: DEEP VEIN THROMBOSIS
     Dosage: 1 DF, UNKNOWN
     Dates: start: 20111213
  3. CISPLATIN [Concomitant]
     Indication: LUNG NEOPLASM MALIGNANT
     Dosage: 55.26 MG, PER CYCLE
     Route: 042
     Dates: start: 20111215
  4. GEMZAR [Suspect]
     Indication: LUNG NEOPLASM MALIGNANT
     Dosage: 1382 MG, PER CYCLE
     Route: 042
     Dates: start: 20111215
  5. GLUTATHIONE SODIUM [Concomitant]
     Indication: LUNG NEOPLASM MALIGNANT
     Dosage: 1934 MG, UNKNOWN
     Route: 042
     Dates: start: 20111215

REACTIONS (5)
  - SEPTIC SHOCK [None]
  - PANCYTOPENIA [None]
  - C-REACTIVE PROTEIN INCREASED [None]
  - ABDOMINAL PAIN [None]
  - DIARRHOEA [None]
